FAERS Safety Report 4484035-9 (Version None)
Quarter: 2004Q4

REPORT INFORMATION
  Report Type: 
  Country: None (occurrence: None)
  Receive Date: 20041021
  Receipt Date: 20041008
  Transmission Date: 20050328
  Serious: Yes (Other)
  Sender: FDA-Public Use
  Company Number: 002#2#2004-00241(0)

PATIENT
  Age: 58 Year
  Sex: Male
  Weight: 78.0187 kg

DRUGS (17)
  1. GLYCOLAX [Suspect]
     Indication: CONSTIPATION
     Dosage: 17G, 1 IN 1 D, ORAL
     Route: 048
     Dates: start: 20041002, end: 20041008
  2. CELECOXIB [Concomitant]
  3. HYDROXYCHLOROQUINE SULFATE [Concomitant]
  4. PREDNISONE [Concomitant]
  5. LEFLUNOMIDE [Concomitant]
  6. FENTANYL [Concomitant]
  7. ACETYLSALICYLIC-ACID [Concomitant]
  8. OMEPRAZOLE [Concomitant]
  9. CLONAZEPAM [Concomitant]
  10. VENLAFAXINE HCL [Concomitant]
  11. ROSUVASTATIN-CALCIUM [Concomitant]
  12. LEVOTHYROXINE SODIUM [Concomitant]
  13. NITROGLYCERIN [Concomitant]
  14. FAMOTIDINE [Concomitant]
  15. AMOXICILLIN [Concomitant]
  16. OMEGA-3-FATTY-ACIDS [Concomitant]
  17. MULTI-VITAMIN [Concomitant]

REACTIONS (6)
  - ABDOMINAL DISTENSION [None]
  - ABDOMINAL PAIN [None]
  - FAECES DISCOLOURED [None]
  - MELAENA [None]
  - TONGUE DISCOLOURATION [None]
  - VOMITING [None]
